FAERS Safety Report 17271780 (Version 2)
Quarter: 2020Q1

REPORT INFORMATION
  Report Type: Report from Study
  Country: US (occurrence: US)
  Receive Date: 20200115
  Receipt Date: 20200122
  Transmission Date: 20200409
  Serious: Yes (Other)
  Sender: FDA-Public Use
  Company Number: US-AMGEN-USASL2020004103

PATIENT
  Age: 58 Year
  Sex: Male

DRUGS (3)
  1. REPATHA [Suspect]
     Active Substance: EVOLOCUMAB
     Indication: BLOOD CHOLESTEROL ABNORMAL
     Dosage: 140 MILLIGRAM, QMO
     Route: 065
  2. REPATHA [Suspect]
     Active Substance: EVOLOCUMAB
     Dosage: 140 MILLIGRAM, Q2WK
     Route: 065
  3. REPATHA [Suspect]
     Active Substance: EVOLOCUMAB
     Indication: HYPERCHOLESTEROLAEMIA
     Dosage: 140 MILLIGRAM, Q2WK
     Route: 065

REACTIONS (9)
  - Neuropathy peripheral [Recovered/Resolved]
  - Coronary artery occlusion [Unknown]
  - Myalgia [Recovered/Resolved]
  - Feeling abnormal [Unknown]
  - Neuralgia [Unknown]
  - Gait disturbance [Unknown]
  - Intentional product misuse [Unknown]
  - Tendon disorder [Unknown]
  - Myopathy [Unknown]

NARRATIVE: CASE EVENT DATE: 2016
